FAERS Safety Report 6187956-4 (Version None)
Quarter: 2009Q2

REPORT INFORMATION
  Report Type: 
  Country: None (occurrence: None)
  Receive Date: 20090511
  Receipt Date: 20090511
  Transmission Date: 20091009
  Serious: Yes (Hospitalization)
  Sender: FDA-Public Use
  Company Number: None

PATIENT
  Age: 44 Year
  Sex: Male
  Weight: 86.1834 kg

DRUGS (2)
  1. XIENCE V STENT  ABBOTT [Suspect]
     Indication: CORONARY ARTERY DISEASE
     Dosage: 3.5MM X 15MM ONCE INTRACARDIA
     Route: 016
     Dates: start: 20081107, end: 20081107
  2. OPTIRAY 320 [Suspect]
     Indication: CORONARY ARTERY DISEASE
     Dosage: 100ML ONCE INTRACARDIAC
     Route: 016
     Dates: start: 20081107, end: 20081107

REACTIONS (4)
  - CONTRAST MEDIA REACTION [None]
  - DYSPNOEA [None]
  - ERYTHEMA [None]
  - TREMOR [None]
